FAERS Safety Report 10128948 (Version 2)
Quarter: 2014Q4

REPORT INFORMATION
  Report Type: Report from Study
  Country: MX (occurrence: MX)
  Receive Date: 20140428
  Receipt Date: 20141121
  Transmission Date: 20150528
  Serious: Yes (Other)
  Sender: FDA-Public Use
  Company Number: PHHY2014MX050593

PATIENT
  Age: 28 Year
  Sex: Female

DRUGS (3)
  1. FEMARA [Suspect]
     Active Substance: LETROZOLE
     Indication: OVULATION INDUCTION
     Dosage: 2 DF (2 TABLETS), DAILY
     Route: 048
     Dates: start: 201402, end: 201403
  2. FEMARA [Suspect]
     Active Substance: LETROZOLE
     Indication: OFF LABEL USE
  3. DRUG THERAPY NOS [Suspect]
     Active Substance: UNSPECIFIED INGREDIENT
     Indication: PRODUCT USED FOR UNKNOWN INDICATION
     Dosage: 3 DF, EVERY THREE DAYS
     Route: 065

REACTIONS (8)
  - Hair disorder [Unknown]
  - Presyncope [Unknown]
  - Blood pressure decreased [Recovered/Resolved]
  - Vomiting [Recovered/Resolved]
  - Drug ineffective [Recovered/Resolved]
  - Feeling abnormal [Recovered/Resolved]
  - Dizziness [Recovered/Resolved]
  - Blood pressure diastolic increased [Unknown]

NARRATIVE: CASE EVENT DATE: 20140415
